FAERS Safety Report 23514082 (Version 1)
Quarter: 2024Q1

REPORT INFORMATION
  Report Type: Spontaneous
  Country: US (occurrence: None)
  Receive Date: 20240211
  Receipt Date: 20240211
  Transmission Date: 20240410
  Serious: Yes (Other)
  Sender: FDA-Public Use
  Company Number: None

PATIENT
  Age: 46 Year
  Sex: Male
  Weight: 102.15 kg

DRUGS (1)
  1. BELBUCA [Suspect]
     Active Substance: BUPRENORPHINE HYDROCHLORIDE
     Dosage: OTHER QUANTITY : 1 FILM;?FREQUENCY : TWICE A DAY;?
     Route: 002

REACTIONS (1)
  - Dental caries [None]

NARRATIVE: CASE EVENT DATE: 20221230
